FAERS Safety Report 7336169-9 (Version None)
Quarter: 2011Q1

REPORT INFORMATION
  Report Type: 
  Country: None (occurrence: None)
  Receive Date: 20110307
  Receipt Date: 20110225
  Transmission Date: 20110831
  Serious: Yes (Hospitalization)
  Sender: FDA-Public Use
  Company Number: AU-PURDUE-USA-2011-0064628

PATIENT
  Age: 59 Year
  Sex: Female

DRUGS (6)
  1. OXYCONTIN [Suspect]
     Indication: PAIN
     Dosage: 10 MG, UNK
     Dates: start: 20100923, end: 20100923
  2. ABBOCILLIN-G [Concomitant]
     Dosage: UNK
     Dates: start: 20100922, end: 20100923
  3. AVAPRO [Concomitant]
  4. PANADOL OSTEO [Concomitant]
  5. ZOLOFT [Concomitant]
  6. NUROFEN [Concomitant]
     Dosage: UNK
     Dates: start: 20100920

REACTIONS (4)
  - TONGUE DISORDER [None]
  - PALPITATIONS [None]
  - LIP SWELLING [None]
  - INCORRECT DOSE ADMINISTERED [None]
